FAERS Safety Report 10372537 (Version 1)
Quarter: 2014Q3

REPORT INFORMATION
  Report Type: Spontaneous
  Country: US (occurrence: US)
  Receive Date: 20140808
  Receipt Date: 20140808
  Transmission Date: 20150326
  Serious: No
  Sender: FDA-Public Use
  Company Number: US-BRISTOL-MYERS SQUIBB COMPANY-19165083

PATIENT
  Age: 74 Year
  Sex: Female

DRUGS (1)
  1. SPRYCEL [Suspect]
     Active Substance: DASATINIB
     Indication: LEUKAEMIA
     Dosage: INTERRUPTED FOR 2WEEKS
     Route: 048
     Dates: start: 20130222

REACTIONS (3)
  - Nausea [Unknown]
  - Full blood count decreased [Unknown]
  - Diarrhoea [Unknown]
